FAERS Safety Report 9321129 (Version 1)
Quarter: 2013Q2

REPORT INFORMATION
  Report Type: Spontaneous
  Country: US (occurrence: US)
  Receive Date: 20130531
  Receipt Date: 20130531
  Transmission Date: 20140414
  Serious: Yes (Hospitalization, Other)
  Sender: FDA-Public Use
  Company Number: US-PFIZER INC-2009283264

PATIENT
  Age: 49 Year
  Sex: Male
  Weight: 106 kg

DRUGS (9)
  1. CHANTIX [Suspect]
     Indication: SMOKING CESSATION THERAPY
     Dosage: STARTING MONTH PACK
     Route: 048
     Dates: start: 20070914, end: 20090514
  2. LORTAB [Concomitant]
     Indication: PAIN
     Dosage: 10 MG, ONE DOSE EVERY 4 HRS UPTO FIVE A DAY
  3. CADUET [Concomitant]
     Indication: HYPERTENSION
     Dosage: 10/20 MG TABLET ONCE DAILY
     Dates: start: 20090118
  4. CADUET [Concomitant]
     Indication: BLOOD CHOLESTEROL ABNORMAL
  5. MAXZIDE [Concomitant]
     Indication: BLOOD CHOLESTEROL
     Dosage: 25 MG, 1X/DAY
  6. ACYCLOVIR [Concomitant]
     Dosage: 800 MG, 2X/DAY
     Dates: start: 20080114
  7. PROTONIX [Concomitant]
     Dosage: 40 MG, 1X/DAY
  8. TRIAMTERENE-HCTZ [Concomitant]
     Dosage: 25/37.5 MG
     Dates: start: 20090330
  9. HYDROCODONE-APAP [Concomitant]
     Dosage: 10-500 MG
     Dates: start: 20070831

REACTIONS (1)
  - Diabetes mellitus [Recovering/Resolving]
